FAERS Safety Report 8613103-2 (Version None)
Quarter: 2012Q3

REPORT INFORMATION
  Report Type: 
  Country: None (occurrence: None)
  Receive Date: 20120822
  Receipt Date: 20120713
  Transmission Date: 20120928
  Serious: No
  Sender: FDA-Public Use
  Company Number: US-009507513-1207USA005572

PATIENT

DRUGS (3)
  1. JANUMET [Suspect]
     Dosage: 500MG/50MG, BID INT HE MORNING AND AT NIGHT
     Route: 048
  2. LANTUS [Suspect]
     Indication: DIABETES MELLITUS
     Dosage: 30 UNITS, BID
     Route: 058
  3. HUMALOG [Suspect]
     Dosage: 15 UNITS, BEFORE EACH MEAL

REACTIONS (3)
  - GLYCOSYLATED HAEMOGLOBIN INCREASED [None]
  - SENSATION OF HEAVINESS [None]
  - DEPRESSION [None]
